FAERS Safety Report 7496804-1 (Version None)
Quarter: 2011Q2

REPORT INFORMATION
  Report Type: 
  Country: None (occurrence: None)
  Receive Date: 20110523
  Receipt Date: 20110517
  Transmission Date: 20111010
  Serious: Yes (Hospitalization)
  Sender: FDA-Public Use
  Company Number: US-PFIZER INC-2011105926

PATIENT
  Sex: Female
  Weight: 72.6 kg

DRUGS (8)
  1. LINSEED [Concomitant]
     Indication: BLOOD CHOLESTEROL ABNORMAL
     Dosage: 2000 MG, UNK
  2. FISH OIL [Concomitant]
     Dosage: 3000 IU, DAILY
  3. VITAMIN B-12 [Concomitant]
     Dosage: 500 UG, 2X/DAY
  4. TOPROL-XL [Concomitant]
     Indication: HYPERTENSION
     Dosage: 500 MG, UNK
  5. MILK THISTLE [Concomitant]
     Dosage: 240 MG, UNK
  6. DILANTIN [Suspect]
     Indication: CONVULSION PROPHYLAXIS
     Dosage: 130 MG, 2X/DAY
     Route: 048
     Dates: start: 19650101
  7. MULTI-VITAMINS [Concomitant]
     Dosage: UNK
  8. FOLIC ACID [Concomitant]
     Dosage: 400 UG, UNK

REACTIONS (3)
  - BLOOD CARBON MONOXIDE INCREASED [None]
  - CONVULSION [None]
  - ANTICONVULSANT DRUG LEVEL DECREASED [None]
